FAERS Safety Report 14738606 (Version 1)
Quarter: 2018Q2

REPORT INFORMATION
  Report Type: Spontaneous
  Country: DE (occurrence: DE)
  Receive Date: 20180409
  Receipt Date: 20180409
  Transmission Date: 20180711
  Serious: Yes (Hospitalization)
  Sender: FDA-Public Use
  Company Number: DE-PFIZER INC-2018138880

PATIENT
  Age: 53 Year
  Sex: Female

DRUGS (21)
  1. SOLIAN [Concomitant]
     Active Substance: AMISULPRIDE
     Dosage: 200 MG, 1X/DAY
     Dates: start: 20170301, end: 20170302
  2. RISPERDAL [Suspect]
     Active Substance: RISPERIDONE
     Dosage: 2 MG, 1X/DAY
     Dates: start: 20170306, end: 20170309
  3. TAVOR (LORAZEPAM) [Concomitant]
     Active Substance: LORAZEPAM
     Dosage: 2-3 MG ONCE DAILY
     Dates: start: 20170205, end: 20170206
  4. TAVOR (LORAZEPAM) [Concomitant]
     Active Substance: LORAZEPAM
     Dosage: 4.5 MG, 1X/DAY
     Dates: start: 20170212, end: 20170221
  5. HYPNOREX [Concomitant]
     Active Substance: LITHIUM CARBONATE
     Dosage: 800 MG, 1X/DAY
  6. SOLIAN [Concomitant]
     Active Substance: AMISULPRIDE
     Dosage: 500 MG, 1X/DAY
     Dates: start: 20170311
  7. TAVOR (LORAZEPAM) [Concomitant]
     Active Substance: LORAZEPAM
     Dosage: 3.5 MG, 1X/DAY
     Dates: start: 20170207, end: 201702
  8. TAVOR (LORAZEPAM) [Concomitant]
     Active Substance: LORAZEPAM
     Dosage: 3.5 MG, 1X/DAY
     Dates: start: 20170224
  9. RISPERDAL [Suspect]
     Active Substance: RISPERIDONE
     Dosage: 2 MG, 1X/DAY
     Dates: start: 20170206, end: 20170209
  10. RISPERDAL [Suspect]
     Active Substance: RISPERIDONE
     Dosage: 4 MG, 1X/DAY
     Dates: start: 20170210, end: 20170305
  11. RISPERDAL [Suspect]
     Active Substance: RISPERIDONE
     Dosage: 1 MG, 1X/DAY
     Dates: start: 20170310, end: 20170313
  12. QUETIAPIN [Concomitant]
     Active Substance: QUETIAPINE
     Dosage: 75 MG, 1X/DAY
  13. QUETIAPIN [Concomitant]
     Active Substance: QUETIAPINE
     Dosage: 300 MG, 1X/DAY
  14. REMERGIL [Concomitant]
     Active Substance: MIRTAZAPINE
     Dosage: 45 MG, 1X/DAY
     Dates: start: 20170217
  15. VENLAFAXINE HCL [Suspect]
     Active Substance: VENLAFAXINE HYDROCHLORIDE
     Dosage: 150 MG, 1X/DAY
  16. QUETIAPIN [Concomitant]
     Active Substance: QUETIAPINE
     Dosage: 50 MG, 1X/DAY
     Dates: start: 20170224
  17. REMERGIL [Concomitant]
     Active Substance: MIRTAZAPINE
     Dosage: 30 MG, 1X/DAY
     Dates: start: 20170206, end: 20170216
  18. METFORMIN [Concomitant]
     Active Substance: METFORMIN HYDROCHLORIDE
     Dosage: 2000 MG, 1X/DAY
  19. TAVOR (LORAZEPAM) [Concomitant]
     Active Substance: LORAZEPAM
     Dosage: 4 MG, 1X/DAY
     Dates: start: 20170222, end: 20170223
  20. LAMOTRIGIN [Concomitant]
     Active Substance: LAMOTRIGINE
     Dosage: 200 MG, 1X/DAY
  21. SOLIAN [Concomitant]
     Active Substance: AMISULPRIDE
     Dosage: 400 MG, 1X/DAY
     Dates: start: 20170303, end: 20170310

REACTIONS (2)
  - Transaminases increased [Unknown]
  - Abdominal pain upper [Unknown]

NARRATIVE: CASE EVENT DATE: 20170309
